FAERS Safety Report 23379505 (Version 2)
Quarter: 2024Q1

REPORT INFORMATION
  Report Type: Spontaneous
  Country: CN (occurrence: CN)
  Receive Date: 20240108
  Receipt Date: 20240109
  Transmission Date: 20240409
  Serious: Yes (Hospitalization)
  Sender: FDA-Public Use
  Company Number: CN-002147023-NVSC2024CN001862

PATIENT
  Age: 41 Year
  Sex: Male
  Weight: 58 kg

DRUGS (3)
  1. MYCOPHENOLATE SODIUM [Suspect]
     Active Substance: MYCOPHENOLATE SODIUM
     Indication: Renal transplant
     Dosage: 540 MG, Q12H
     Route: 048
     Dates: start: 20230910
  2. MYCOPHENOLATE SODIUM [Suspect]
     Active Substance: MYCOPHENOLATE SODIUM
     Indication: Immunosuppression
     Dosage: 540.000 MG, BID
     Route: 048
     Dates: start: 20230911, end: 20231226
  3. MYCOPHENOLATE SODIUM [Suspect]
     Active Substance: MYCOPHENOLATE SODIUM
     Dosage: 360 MG, Q12H
     Route: 048

REACTIONS (3)
  - White blood cell count decreased [Recovering/Resolving]
  - Gout [Unknown]
  - Hypertension [Unknown]

NARRATIVE: CASE EVENT DATE: 20231226
